FAERS Safety Report 7609972-5 (Version None)
Quarter: 2011Q3

REPORT INFORMATION
  Report Type: 
  Country: None (occurrence: None)
  Receive Date: 20110714
  Receipt Date: 20110708
  Transmission Date: 20111222
  Serious: Yes (Death, Other)
  Sender: FDA-Public Use
  Company Number: CY-MERCK-1107USA01180

PATIENT
  Age: 36 Month
  Sex: Male

DRUGS (5)
  1. MEROPENEM [Concomitant]
     Route: 065
  2. VANCOMYCIN [Concomitant]
     Route: 065
  3. CANCIDAS [Suspect]
     Indication: CANDIDIASIS
     Route: 065
     Dates: start: 20110613, end: 20110615
  4. NOREPINEPHRINE [Concomitant]
     Route: 065
  5. DOPAMINE HYDROCHLORIDE [Concomitant]
     Route: 065

REACTIONS (3)
  - CONGESTIVE CARDIOMYOPATHY [None]
  - CARDIAC FAILURE [None]
  - CONDITION AGGRAVATED [None]
